FAERS Safety Report 10710531 (Version 2)
Quarter: 2015Q2

REPORT INFORMATION
  Report Type: Spontaneous
  Country: US (occurrence: None)
  Receive Date: 20150112
  Receipt Date: 20150608
  Transmission Date: 20150821
  Serious: Yes (Other)
  Sender: FDA-Public Use
  Company Number: A1033748A

PATIENT
  Sex: Male

DRUGS (1)
  1. EPIVIR [Suspect]
     Active Substance: LAMIVUDINE
     Indication: HIV INFECTION
     Dosage: 150MG, U, UNKNOWN
     Dates: start: 1994

REACTIONS (5)
  - Cataract [None]
  - Sinus disorder [None]
  - Blindness [None]
  - Eye operation [None]
  - Nasopharyngitis [None]
